FAERS Safety Report 10897439 (Version 1)
Quarter: 2015Q1

REPORT INFORMATION
  Report Type: Spontaneous
  Country: US (occurrence: US)
  Receive Date: 20150309
  Receipt Date: 20150309
  Transmission Date: 20150721
  Serious: No
  Sender: FDA-Public Use
  Company Number: US-PFIZER INC-2015084488

PATIENT
  Sex: Male

DRUGS (3)
  1. CELEBREX [Suspect]
     Active Substance: CELECOXIB
     Indication: MUSCULOSKELETAL PAIN
     Dosage: ONCE A DAY (STRENGTH NOT PROVIDED)
  2. IBUPROFEN. [Suspect]
     Active Substance: IBUPROFEN
     Dosage: UNSPECIFIED DOSE, 3 TIMES A DAY
  3. PERCOCET [Concomitant]
     Active Substance: ACETAMINOPHEN\OXYCODONE HYDROCHLORIDE

REACTIONS (3)
  - Nausea [Unknown]
  - Pain in extremity [Unknown]
  - Gastric disorder [Unknown]
